FAERS Safety Report 15116503 (Version 1)
Quarter: 2018Q3

REPORT INFORMATION
  Report Type: Spontaneous
  Country: CN (occurrence: CN)
  Receive Date: 20180706
  Receipt Date: 20180706
  Transmission Date: 20181010
  Serious: Yes (Other)
  Sender: FDA-Public Use
  Company Number: CN-BAYER-2018-124413

PATIENT
  Age: 60 Year
  Sex: Male
  Weight: 64 kg

DRUGS (3)
  1. ULTRAVIST [Suspect]
     Active Substance: IOPROMIDE
     Indication: COMPUTERISED TOMOGRAM
  2. ULTRAVIST [Suspect]
     Active Substance: IOPROMIDE
     Indication: INTESTINAL OBSTRUCTION
     Dosage: 100 ML, ONCE
     Route: 042
     Dates: start: 20180502, end: 20180502
  3. DEXAMETHASONE. [Concomitant]
     Active Substance: DEXAMETHASONE

REACTIONS (1)
  - Liver injury [Recovered/Resolved]

NARRATIVE: CASE EVENT DATE: 20180502
